FAERS Safety Report 7801562-4 (Version None)
Quarter: 2011Q4

REPORT INFORMATION
  Report Type: 
  Country: None (occurrence: None)
  Receive Date: 20111007
  Receipt Date: 20100324
  Transmission Date: 20120403
  Serious: Yes (Other)
  Sender: FDA-Public Use
  Company Number: PT-RANBAXY-2010RR-32841

PATIENT
  Age: 24 Year
  Sex: Female

DRUGS (9)
  1. CEFUROXIME [Suspect]
  2. KETOROLAC TROMETHAMINE [Suspect]
     Dosage: UNK
     Dates: start: 20070101
  3. AMPICILLIN SODIUM [Suspect]
     Dosage: UNK
     Dates: start: 20070101
  4. ACETAMINOPHEN [Suspect]
     Dosage: UNK
     Dates: start: 20070101
  5. GENTAMICIN [Suspect]
     Dosage: UNK
     Dates: start: 20070101
  6. METRONIDAZOLE [Suspect]
     Dosage: UNK
     Dates: start: 20070101
  7. PPL [Suspect]
  8. CEFTRIAXONE [Suspect]
     Indication: SKIN TEST POSITIVE
  9. DIATER [Suspect]

REACTIONS (1)
  - URTICARIA [None]
